FAERS Safety Report 9789638 (Version 2)
Quarter: 2013Q4

REPORT INFORMATION
  Report Type: Spontaneous
  Country: BR (occurrence: BR)
  Receive Date: 20131231
  Receipt Date: 20131231
  Transmission Date: 20140711
  Serious: Yes (Other)
  Sender: FDA-Public Use
  Company Number: BR-ROCHE-1042346

PATIENT
  Age: 50 Year
  Sex: Male
  Weight: 102 kg

DRUGS (10)
  1. RIVOTRIL [Suspect]
     Indication: BIPOLAR DISORDER
     Dosage: 0.5 MG AT MORNING, 2 MG AT AFTERNOON AND 2 MG AT EVENING
     Route: 048
     Dates: start: 2001, end: 2005
  2. RIVOTRIL [Suspect]
     Indication: ANXIETY
     Route: 048
     Dates: start: 2005, end: 2007
  3. RIVOTRIL [Suspect]
     Route: 048
     Dates: end: 20120825
  4. RIVOTRIL [Suspect]
     Route: 048
  5. RIVOTRIL [Suspect]
     Dosage: 0.5 MG AT AMORNING, 2 MG AT AFTERNOON AND 2 MG AT EVENING
     Route: 048
     Dates: start: 20130331
  6. RIVOTRIL [Suspect]
     Dosage: 1/2 TABLET OF RIVOTRIL 2MG IN THE AFTERNOON, 1/4 TABLET 2MG AFTER THE FIRST DOSE AND SOMETIMES 1 TAB
     Route: 065
  7. PAROXETINE [Suspect]
     Indication: PRODUCT USED FOR UNKNOWN INDICATION
     Route: 065
     Dates: start: 2008, end: 2008
  8. DORFLEX [Concomitant]
     Indication: MYALGIA
  9. DORFLEX [Concomitant]
     Indication: NECK PAIN
  10. PONDERA [Concomitant]

REACTIONS (43)
  - Feeling abnormal [Not Recovered/Not Resolved]
  - Disturbance in attention [Not Recovered/Not Resolved]
  - Fatigue [Not Recovered/Not Resolved]
  - Dyspnoea [Not Recovered/Not Resolved]
  - Crying [Not Recovered/Not Resolved]
  - Bipolar disorder [Not Recovered/Not Resolved]
  - Drug dependence [Not Recovered/Not Resolved]
  - Aggression [Not Recovered/Not Resolved]
  - Irritability [Not Recovered/Not Resolved]
  - Insomnia [Unknown]
  - Somnolence [Not Recovered/Not Resolved]
  - Euphoric mood [Unknown]
  - Fatigue [Not Recovered/Not Resolved]
  - Feeling of despair [Unknown]
  - Depression [Not Recovered/Not Resolved]
  - Nervousness [Not Recovered/Not Resolved]
  - Neck pain [Recovered/Resolved]
  - Amnesia [Not Recovered/Not Resolved]
  - Abnormal behaviour [Not Recovered/Not Resolved]
  - Hyperacusis [Not Recovered/Not Resolved]
  - Speech disorder [Not Recovered/Not Resolved]
  - Thinking abnormal [Not Recovered/Not Resolved]
  - Depressed mood [Not Recovered/Not Resolved]
  - Mood altered [Not Recovered/Not Resolved]
  - Fear [Not Recovered/Not Resolved]
  - Tension [Not Recovered/Not Resolved]
  - Panic attack [Not Recovered/Not Resolved]
  - Suspiciousness [Not Recovered/Not Resolved]
  - Anger [Not Recovered/Not Resolved]
  - Medication error [Unknown]
  - Memory impairment [Unknown]
  - Tension [Not Recovered/Not Resolved]
  - Drug ineffective [Unknown]
  - Overdose [Unknown]
  - Somnolence [Not Recovered/Not Resolved]
  - Stress [Not Recovered/Not Resolved]
  - Hyperacusis [Not Recovered/Not Resolved]
  - Claustrophobia [Unknown]
  - Social phobia [Not Recovered/Not Resolved]
  - Urinary incontinence [Not Recovered/Not Resolved]
  - Weight increased [Unknown]
  - Hypoaesthesia [Not Recovered/Not Resolved]
  - Lethargy [Not Recovered/Not Resolved]
